FAERS Safety Report 21785869 (Version 2)
Quarter: 2023Q1

REPORT INFORMATION
  Report Type: Spontaneous
  Country: UA (occurrence: UA)
  Receive Date: 20221227
  Receipt Date: 20230103
  Transmission Date: 20230418
  Serious: Yes (Other)
  Sender: FDA-Public Use
  Company Number: UA-002147023-NVSC2022UA298572

PATIENT
  Age: 46 Year
  Sex: Female

DRUGS (3)
  1. METHOTREXATE [Suspect]
     Active Substance: METHOTREXATE
     Indication: Rheumatoid arthritis
     Dosage: 10 MG, QW
     Route: 065
  2. METHYLPREDNISOLONE [Concomitant]
     Active Substance: METHYLPREDNISOLONE
     Indication: Rheumatoid arthritis
     Dosage: 8 MG, QD
     Route: 065
  3. DEXAMETHASONE [Concomitant]
     Active Substance: DEXAMETHASONE
     Indication: Rheumatoid arthritis
     Dosage: UNK (8-12 MG, 2-4 TIMES A WEEK)
     Route: 030

REACTIONS (8)
  - Cardiorenal syndrome [Recovering/Resolving]
  - Left ventricular failure [Unknown]
  - Exercise tolerance decreased [Unknown]
  - Fluid retention [Unknown]
  - Apnoea [Unknown]
  - Myopericarditis [Unknown]
  - Acute kidney injury [Unknown]
  - Nephropathy [Unknown]
